FAERS Safety Report 10680610 (Version 1)
Quarter: 2014Q4

REPORT INFORMATION
  Report Type: Spontaneous
  Country: US (occurrence: US)
  Receive Date: 20141229
  Receipt Date: 20141229
  Transmission Date: 20150529
  Serious: Yes (Hospitalization)
  Sender: FDA-Public Use
  Company Number: US-SA-2014SA093419

PATIENT
  Age: 65 Year
  Sex: Female
  Weight: 56 kg

DRUGS (32)
  1. HMG COA REDUCTASE INHIBITORS [Concomitant]
     Active Substance: UNSPECIFIED INGREDIENT
  2. DONEPEZIL [Concomitant]
     Active Substance: DONEPEZIL
  3. PROTON PUMP INHIBITORS [Concomitant]
     Active Substance: UNSPECIFIED INGREDIENT
  4. HEPARIN [Concomitant]
     Active Substance: HEPARIN SODIUM
  5. PRAVASTATIN [Concomitant]
     Active Substance: PRAVASTATIN\PRAVASTATIN SODIUM
  6. PROPRANOLOL [Concomitant]
     Active Substance: PROPRANOLOL\PROPRANOLOL HYDROCHLORIDE
  7. ROPINIROLE. [Concomitant]
     Active Substance: ROPINIROLE
  8. BUTALBITAL [Concomitant]
     Active Substance: BUTALBITAL
  9. EXELON [Concomitant]
     Active Substance: RIVASTIGMINE TARTRATE
  10. FAMOTIDINE. [Concomitant]
     Active Substance: FAMOTIDINE
  11. HYDRALAZINE [Concomitant]
     Active Substance: HYDRALAZINE HYDROCHLORIDE
  12. SENNA ALEXANDRINA FRUIT EXTRACT/SENNA ALEXANDRINA DRY EXTRACT [Concomitant]
  13. PLAVIX [Suspect]
     Active Substance: CLOPIDOGREL BISULFATE
     Indication: CATHETERISATION CARDIAC
     Dosage: FRQUENCY:8 TIMES DAY
     Route: 048
     Dates: start: 201003, end: 201003
  14. AMBIEN [Concomitant]
     Active Substance: ZOLPIDEM TARTRATE
  15. ASPIRIN. [Concomitant]
     Active Substance: ASPIRIN
  16. BUDESONIDE. [Concomitant]
     Active Substance: BUDESONIDE
  17. LEVETIRACETAM. [Concomitant]
     Active Substance: LEVETIRACETAM
  18. ACETAMINOPHEN. [Concomitant]
     Active Substance: ACETAMINOPHEN
  19. PROPOXYPHENE. [Concomitant]
     Active Substance: PROPOXYPHENE HYDROCHLORIDE
  20. CARBIDOPA. [Concomitant]
     Active Substance: CARBIDOPA
  21. LISINOPRIL. [Concomitant]
     Active Substance: LISINOPRIL
  22. SERTRALINE [Concomitant]
     Active Substance: SERTRALINE HYDROCHLORIDE
  23. ALBUTEROL. [Concomitant]
     Active Substance: ALBUTEROL
  24. QUINIDINE SULFATE. [Concomitant]
     Active Substance: QUINIDINE SULFATE
  25. VENLAFAXINE HYDROCHLORIDE. [Concomitant]
     Active Substance: VENLAFAXINE HYDROCHLORIDE
  26. PLAVIX [Suspect]
     Active Substance: CLOPIDOGREL BISULFATE
     Indication: CATHETERISATION CARDIAC
     Dosage: FREQUENCY:8 TIMES A DAY
     Route: 048
     Dates: start: 201004, end: 201004
  27. HYPNOTICS AND SEDATIVES [Concomitant]
     Active Substance: UNSPECIFIED INGREDIENT
  28. TYLENOL [Concomitant]
     Active Substance: ACETAMINOPHEN
  29. ZOLOFT [Concomitant]
     Active Substance: SERTRALINE HYDROCHLORIDE
  30. LIPITOR [Concomitant]
     Active Substance: ATORVASTATIN CALCIUM
  31. AMLODIPINE [Concomitant]
     Active Substance: AMLODIPINE BESYLATE
  32. BACLOFEN. [Concomitant]
     Active Substance: BACLOFEN

REACTIONS (1)
  - Cerebral haemorrhage [Unknown]

NARRATIVE: CASE EVENT DATE: 201004
